FAERS Safety Report 7511636-3 (Version None)
Quarter: 2011Q2

REPORT INFORMATION
  Report Type: 
  Country: None (occurrence: None)
  Receive Date: 20110531
  Receipt Date: 20110523
  Transmission Date: 20111010
  Serious: Yes (Other)
  Sender: FDA-Public Use
  Company Number: US-PFIZER INC-2011082622

PATIENT
  Sex: Female
  Weight: 66.2 kg

DRUGS (1)
  1. DEPO-SUBQ PROVERA 104 [Suspect]
     Indication: CONTRACEPTION
     Dosage: 104 MG/0.65ML, EVERY 3 MONTHS
     Route: 058
     Dates: start: 20100910

REACTIONS (1)
  - ANGIOEDEMA [None]
